FAERS Safety Report 23914516 (Version 1)
Quarter: 2024Q2

REPORT INFORMATION
  Report Type: Spontaneous
  Country: TN (occurrence: TN)
  Receive Date: 20240529
  Receipt Date: 20240529
  Transmission Date: 20240716
  Serious: Yes (Other)
  Sender: FDA-Public Use
  Company Number: TN-SUN PHARMACEUTICAL INDUSTRIES LTD-2024R1-448497

PATIENT
  Age: 33 Year
  Sex: Female

DRUGS (1)
  1. CHLORPROMAZINE [Suspect]
     Active Substance: CHLORPROMAZINE
     Indication: Bipolar disorder
     Dosage: UNK
     Route: 065
     Dates: start: 201506

REACTIONS (4)
  - Lupus-like syndrome [Unknown]
  - Antinuclear antibody positive [Unknown]
  - Activated partial thromboplastin time [Unknown]
  - Antiphospholipid antibodies positive [Unknown]
